FAERS Safety Report 16006063 (Version 1)
Quarter: 2019Q1

REPORT INFORMATION
  Report Type: Spontaneous
  Country: US (occurrence: US)
  Receive Date: 20190226
  Receipt Date: 20190226
  Transmission Date: 20190418
  Serious: No
  Sender: FDA-Public Use
  Company Number: US-B.I. PHARMACEUTICALS,INC./RIDGEFIELD-2019-BI-007502

PATIENT
  Age: 68 Year
  Sex: Male

DRUGS (1)
  1. SPIRIVA RESPIMAT [Suspect]
     Active Substance: TIOTROPIUM BROMIDE
     Indication: ASTHMA
     Dosage: 1 INHALATION A DAY; FORM STRENGTH: 1.25 MCG; FORMULATION: INHALATION SPRAY ACTIONTAKEN: NOT REPORTED
     Route: 055
     Dates: start: 201812

REACTIONS (3)
  - Oral contusion [Not Recovered/Not Resolved]
  - Lip haemorrhage [Recovered/Resolved]
  - Lip injury [Not Recovered/Not Resolved]

NARRATIVE: CASE EVENT DATE: 20190217
